FAERS Safety Report 17438651 (Version 2)
Quarter: 2020Q3

REPORT INFORMATION
  Report Type: Report from Study
  Country: US (occurrence: US)
  Receive Date: 20200220
  Receipt Date: 20200709
  Transmission Date: 20201102
  Serious: Yes (Hospitalization, Other)
  Sender: FDA-Public Use
  Company Number: US-TEVA-2020-US-1187504

PATIENT
  Age: 40 Year
  Sex: Female

DRUGS (1)
  1. CLOZAPINE TEVA [Suspect]
     Active Substance: CLOZAPINE
     Route: 048

REACTIONS (3)
  - Hospitalisation [Unknown]
  - Dizziness [Recovered/Resolved]
  - Neutrophil count abnormal [Unknown]

NARRATIVE: CASE EVENT DATE: 20200325
